FAERS Safety Report 15888619 (Version 1)
Quarter: 2019Q1

REPORT INFORMATION
  Report Type: Spontaneous
  Country: US (occurrence: US)
  Receive Date: 20190129
  Receipt Date: 20190129
  Transmission Date: 20190417
  Serious: No
  Sender: FDA-Public Use
  Company Number: None

PATIENT
  Age: 54 Year
  Sex: Female
  Weight: 85.5 kg

DRUGS (6)
  1. BUPROPION. [Concomitant]
     Active Substance: BUPROPION
  2. TIZANIDINE. [Concomitant]
     Active Substance: TIZANIDINE
  3. BUPROPION HCL SR 150 MG TABLET [Suspect]
     Active Substance: BUPROPION HYDROCHLORIDE
     Indication: DEPRESSION
     Dosage: ?          QUANTITY:180 TABLET(S);?
     Route: 048
     Dates: start: 20180926, end: 20181130
  4. SERTRALINE [Concomitant]
     Active Substance: SERTRALINE HYDROCHLORIDE
  5. SIMVASTATIN. [Concomitant]
     Active Substance: SIMVASTATIN
  6. AMITRIPTYLINE [Concomitant]
     Active Substance: AMITRIPTYLINE

REACTIONS (5)
  - Product odour abnormal [None]
  - Product substitution issue [None]
  - Malaise [None]
  - Migraine [None]
  - Nausea [None]

NARRATIVE: CASE EVENT DATE: 20180926
